FAERS Safety Report 8289746-5 (Version None)
Quarter: 2012Q2

REPORT INFORMATION
  Report Type: 
  Country: None (occurrence: None)
  Receive Date: 20120417
  Receipt Date: 20120409
  Transmission Date: 20120825
  Serious: No
  Sender: FDA-Public Use
  Company Number: US-PFIZER INC-2012089505

PATIENT
  Sex: Female
  Weight: 65.76 kg

DRUGS (10)
  1. ASPIRIN [Concomitant]
     Dosage: 81 MG, DAILY
  2. VITAMIN TAB [Concomitant]
     Dosage: UNK
  3. DETROL LA [Suspect]
     Indication: URINARY INCONTINENCE
     Dosage: 4 MG, DAILY
     Route: 048
     Dates: start: 20111121, end: 20111201
  4. TOVIAZ [Suspect]
     Indication: URINARY INCONTINENCE
     Dosage: UNK
     Dates: start: 20120101, end: 20120301
  5. ENABLEX [Suspect]
     Indication: URINARY INCONTINENCE
     Dosage: UNK
  6. EVISTA [Concomitant]
     Indication: BONE DISORDER
     Dosage: UNK
  7. VESICARE [Suspect]
     Indication: URINARY INCONTINENCE
     Dosage: UNK
  8. LEVOTHYROXINE [Concomitant]
     Indication: THYROID DISORDER
     Dosage: 50 UG, DAILY
  9. CALCIUM [Concomitant]
     Dosage: UNK
  10. DETROL [Suspect]
     Indication: URINARY INCONTINENCE
     Dosage: 2 MG, DAILY
     Route: 048
     Dates: start: 20120123, end: 20120101

REACTIONS (5)
  - DRUG DISPENSING ERROR [None]
  - DRUG INEFFECTIVE [None]
  - ABDOMINAL PAIN LOWER [None]
  - ABDOMINAL PAIN UPPER [None]
  - CONSTIPATION [None]
